FAERS Safety Report 4342067-5 (Version None)
Quarter: 2004Q1

REPORT INFORMATION
  Report Type: 
  Country: None (occurrence: None)
  Receive Date: 20040329
  Receipt Date: 20040120
  Transmission Date: 20041129
  Serious: No
  Sender: FDA-Public Use
  Company Number: 04P-163-0247713-00

PATIENT
  Age: 64 Year
  Sex: Female
  Weight: 54.4316 kg

DRUGS (8)
  1. HUMIRA [Suspect]
     Indication: RHEUMATOID ARTHRITIS
     Dosage: 40 MG, 1 IN 2 WK, SUBCUTANEOUS
     Route: 058
     Dates: start: 20031103
  2. LEFLUNOMIDE [Concomitant]
  3. MELOXICAM [Concomitant]
  4. TRAMADOL HCL [Concomitant]
  5. METAXALONE [Concomitant]
  6. RABEPRAZOLE SODIUM [Concomitant]
  7. GABAPENTIN [Concomitant]
  8. FOLIC ACID [Concomitant]

REACTIONS (2)
  - BLOOD POTASSIUM DECREASED [None]
  - PARANASAL SINUS HYPERSECRETION [None]
